FAERS Safety Report 10182603 (Version 1)
Quarter: 2014Q2

REPORT INFORMATION
  Report Type: Spontaneous
  Country: US (occurrence: None)
  Receive Date: 20140416
  Receipt Date: 20140416
  Transmission Date: 20141212
  Serious: Yes (Other)
  Sender: FDA-Public Use
  Company Number: 163-POMAL-14012952

PATIENT
  Age: 62 Year
  Sex: Female
  Weight: 67.13 kg

DRUGS (5)
  1. POMALYST [Suspect]
     Indication: PLASMA CELL MYELOMA
     Dosage: 2 MG, 21 IN 28 D, PO
     Route: 048
     Dates: start: 20131023
  2. AMOXICILLIN/K CLAV (AMOXICILLIN W/CLAVULANATE POTASSIUM) [Concomitant]
  3. ECOTRIN (ACETYLSALICYCLIC ACID) [Concomitant]
  4. OMEPRAZOLE (OMEPRAZOLE) [Concomitant]
  5. PRILOSEC (OMEPRAZOLE) (UNKNOWN) [Concomitant]

REACTIONS (1)
  - Plasmacytoma [None]
